FAERS Safety Report 4386461-5 (Version None)
Quarter: 2004Q2

REPORT INFORMATION
  Report Type: 
  Country: None (occurrence: None)
  Receive Date: 20040629
  Receipt Date: 20040601
  Transmission Date: 20050107
  Serious: Yes (Hospitalization)
  Sender: FDA-Public Use
  Company Number: DE-ROCHE-369445

PATIENT
  Age: 53 Year
  Sex: Male

DRUGS (10)
  1. FUZEON [Suspect]
     Indication: HIV INFECTION
     Route: 058
     Dates: start: 20030402, end: 20040316
  2. VIREAD [Suspect]
     Indication: HIV INFECTION
     Route: 048
     Dates: start: 20030402, end: 20040316
  3. MCP DROPS [Concomitant]
     Indication: NAUSEA
     Route: 048
  4. ALLOPURINOL [Concomitant]
     Route: 048
  5. KALETRA [Concomitant]
     Indication: HIV INFECTION
     Route: 048
     Dates: start: 20000925
  6. TIPRANAVIR [Suspect]
     Indication: HIV INFECTION
     Route: 048
     Dates: start: 20030416
  7. RITONAVIR [Concomitant]
     Indication: HIV INFECTION
     Route: 048
     Dates: start: 20000925
  8. EPIVIR [Concomitant]
     Route: 048
     Dates: start: 20010305
  9. CAPTOPRIL [Concomitant]
     Route: 048
     Dates: start: 20040112
  10. VOLTAREN [Concomitant]
     Indication: GOUT
     Route: 048
     Dates: start: 20040225

REACTIONS (7)
  - HAEMODIALYSIS [None]
  - HAEMORRHAGE [None]
  - NEPHRITIS INTERSTITIAL [None]
  - PYELONEPHRITIS [None]
  - RENAL FAILURE ACUTE [None]
  - RENAL TUBULAR DISORDER [None]
  - URINARY TRACT INFECTION [None]
